FAERS Safety Report 21095474 (Version 17)
Quarter: 2023Q2

REPORT INFORMATION
  Report Type: Report from Study
  Country: US (occurrence: US)
  Receive Date: 20220718
  Receipt Date: 20230612
  Transmission Date: 20230721
  Serious: Yes (Other)
  Sender: FDA-Public Use
  Company Number: US-002147023-NVSC2022US162314

PATIENT
  Age: 55 Year
  Sex: Female

DRUGS (2)
  1. KESIMPTA [Suspect]
     Active Substance: OFATUMUMAB
     Indication: Multiple sclerosis
     Dosage: 20 MG, QMO
     Route: 058
     Dates: start: 20220508
  2. KESIMPTA [Suspect]
     Active Substance: OFATUMUMAB
     Dosage: 20 MG, QMO
     Route: 054

REACTIONS (14)
  - Spinal cord compression [Unknown]
  - Pain in extremity [Unknown]
  - Neck pain [Unknown]
  - Multiple sclerosis relapse [Recovering/Resolving]
  - Neuralgia [Recovering/Resolving]
  - Myalgia [Recovering/Resolving]
  - Arthralgia [Recovering/Resolving]
  - Migraine [Unknown]
  - Pain [Unknown]
  - Limb discomfort [Recovered/Resolved]
  - Carpal tunnel syndrome [Unknown]
  - Fatigue [Unknown]
  - Injection site pain [Unknown]
  - Incorrect route of product administration [Unknown]

NARRATIVE: CASE EVENT DATE: 20220508
